FAERS Safety Report 12628000 (Version 1)
Quarter: 2016Q3

REPORT INFORMATION
  Report Type: Spontaneous
  Country: US (occurrence: US)
  Receive Date: 20160807
  Receipt Date: 20160807
  Transmission Date: 20161109
  Serious: Yes (Hospitalization)
  Sender: FDA-Public Use
  Company Number: US-BEH-2016071673

PATIENT
  Weight: 129.25 kg

DRUGS (48)
  1. GAMUNEX [Concomitant]
     Active Substance: HUMAN IMMUNOGLOBULIN G
  2. LIDOCAINE/PRILOCAINE [Concomitant]
     Active Substance: LIDOCAINE\PRILOCAINE
  3. REGLAN [Concomitant]
     Active Substance: METOCLOPRAMIDE HYDROCHLORIDE
  4. GABAPENTIN. [Concomitant]
     Active Substance: GABAPENTIN
  5. ROBAXIN [Concomitant]
     Active Substance: METHOCARBAMOL
  6. PREDNISONE. [Concomitant]
     Active Substance: PREDNISONE
  7. VITAMIN E                          /00110501/ [Concomitant]
     Active Substance: TOCOPHEROL
  8. EPIPEN [Concomitant]
     Active Substance: EPINEPHRINE
  9. HUMALOG N [Concomitant]
     Active Substance: INSULIN LISPRO
  10. METOLAZONE. [Concomitant]
     Active Substance: METOLAZONE
  11. ROBITUSSIN (GUAIFENESIN) [Concomitant]
     Active Substance: GUAIFENESIN
  12. SINGULAIR [Concomitant]
     Active Substance: MONTELUKAST SODIUM
  13. MAXALT [Concomitant]
     Active Substance: RIZATRIPTAN BENZOATE
  14. SODIUM CHLORIDE. [Concomitant]
     Active Substance: SODIUM CHLORIDE
  15. CYMBALTA [Concomitant]
     Active Substance: DULOXETINE HYDROCHLORIDE
  16. WELLBUTRIN [Concomitant]
     Active Substance: BUPROPION HYDROCHLORIDE
  17. BUMETANIDE. [Concomitant]
     Active Substance: BUMETANIDE
  18. SEROQUEL [Concomitant]
     Active Substance: QUETIAPINE FUMARATE
  19. NORVASC [Concomitant]
     Active Substance: AMLODIPINE BESYLATE
  20. DIPHENHYDRAMINE. [Concomitant]
     Active Substance: DIPHENHYDRAMINE
  21. SYMBICORT [Concomitant]
     Active Substance: BUDESONIDE\FORMOTEROL FUMARATE DIHYDRATE
  22. OCEAN NASAL [Concomitant]
  23. PROAIR HFA [Concomitant]
     Active Substance: ALBUTEROL SULFATE
  24. ZEMAIRA [Suspect]
     Active Substance: .ALPHA.1-PROTEINASE INHIBITOR HUMAN
     Dosage: 60 MG/KG, QW (974 MG/VL)
     Route: 042
  25. LEVOTHYROXINE. [Concomitant]
     Active Substance: LEVOTHYROXINE
  26. BYSTOLIC [Concomitant]
     Active Substance: NEBIVOLOL HYDROCHLORIDE
  27. LEXAPRO [Concomitant]
     Active Substance: ESCITALOPRAM OXALATE
  28. PROMETHAZINE [Concomitant]
     Active Substance: PROMETHAZINE\PROMETHAZINE HYDROCHLORIDE
  29. POTASSIUM CHLORIDE. [Concomitant]
     Active Substance: POTASSIUM CHLORIDE
  30. ACETAMINOPHEN. [Concomitant]
     Active Substance: ACETAMINOPHEN
  31. FOLIC ACID. [Concomitant]
     Active Substance: FOLIC ACID
  32. VOLTAREN [Concomitant]
     Active Substance: DICLOFENAC SODIUM
  33. CORTISPORIN                        /00271401/ [Concomitant]
  34. VITAMIN D3 [Concomitant]
     Active Substance: CHOLECALCIFEROL
  35. SPIRIVA [Concomitant]
     Active Substance: TIOTROPIUM BROMIDE MONOHYDRATE
  36. XOPENEX [Concomitant]
     Active Substance: LEVALBUTEROL HYDROCHLORIDE
  37. CORICIDIN                          /00070002/ [Concomitant]
  38. ZEMAIRA [Suspect]
     Active Substance: .ALPHA.1-PROTEINASE INHIBITOR HUMAN
     Indication: ALPHA-1 ANTI-TRYPSIN DEFICIENCY
     Dosage: UNK
     Route: 042
     Dates: start: 20130918
  39. HEPARIN [Concomitant]
     Active Substance: HEPARIN SODIUM
  40. TOPAMAX [Concomitant]
     Active Substance: TOPIRAMATE
  41. CATHFLO ACTIVASE [Concomitant]
     Active Substance: ALTEPLASE
  42. NORTRIPTYLINE [Concomitant]
     Active Substance: NORTRIPTYLINE
  43. COLACE [Concomitant]
     Active Substance: DOCUSATE SODIUM
  44. KLONOPIN [Concomitant]
     Active Substance: CLONAZEPAM
  45. LANTUS [Concomitant]
     Active Substance: INSULIN GLARGINE
  46. ZYRTEC [Concomitant]
     Active Substance: CETIRIZINE HYDROCHLORIDE
  47. PRILOSEC [Concomitant]
     Active Substance: OMEPRAZOLE MAGNESIUM
  48. MIRALAX [Concomitant]
     Active Substance: POLYETHYLENE GLYCOL 3350

REACTIONS (2)
  - Chest pain [Unknown]
  - Chest discomfort [Unknown]
